FAERS Safety Report 4433726-4 (Version None)
Quarter: 2004Q3

REPORT INFORMATION
  Report Type: 
  Country: None (occurrence: None)
  Receive Date: 20040826
  Receipt Date: 20030113
  Transmission Date: 20050211
  Serious: Yes (Other)
  Sender: FDA-Public Use
  Company Number: US-MERCK-0301USA01099

PATIENT
  Age: 46 Year
  Sex: Male
  Weight: 107 kg

DRUGS (5)
  1. ASPIRIN [Concomitant]
     Indication: CEREBROVASCULAR ACCIDENT
     Route: 065
     Dates: start: 20011020
  2. CELEBREX [Concomitant]
     Route: 065
     Dates: start: 20010101
  3. VIOXX [Suspect]
     Indication: PAIN
     Route: 048
     Dates: start: 20020430, end: 20020624
  4. VIOXX [Suspect]
     Route: 048
     Dates: start: 20010801, end: 20020103
  5. ULTRAM [Concomitant]
     Indication: BACK PAIN
     Route: 065

REACTIONS (38)
  - ACTIVITIES OF DAILY LIVING IMPAIRED [None]
  - AMNESIA [None]
  - ANHEDONIA [None]
  - ANXIETY [None]
  - AORTIC VALVE SCLEROSIS [None]
  - ASTHENIA [None]
  - ATRIAL FIBRILLATION [None]
  - BLOOD CHOLESTEROL INCREASED [None]
  - BLOOD PRESSURE SYSTOLIC INCREASED [None]
  - CARDIOVASCULAR DISORDER [None]
  - CAROTID ARTERY DISEASE [None]
  - CAROTID ARTERY STENOSIS [None]
  - CELLULITIS [None]
  - CEREBROVASCULAR ACCIDENT [None]
  - CERVICOBRACHIAL SYNDROME [None]
  - CHEST PAIN [None]
  - DYSARTHRIA [None]
  - DYSLIPIDAEMIA [None]
  - DYSPEPSIA [None]
  - EJECTION FRACTION DECREASED [None]
  - EMOTIONAL DISTRESS [None]
  - FACIAL PALSY [None]
  - FURUNCLE [None]
  - HYPERHIDROSIS [None]
  - HYPOAESTHESIA [None]
  - ISCHAEMIC STROKE [None]
  - MITRAL VALVE DISEASE [None]
  - MUSCULOSKELETAL DISCOMFORT [None]
  - PAIN [None]
  - PARAESTHESIA [None]
  - RENAL DISORDER [None]
  - RENAL FAILURE [None]
  - SKIN ULCER [None]
  - SPINAL OSTEOARTHRITIS [None]
  - SPONDYLITIS [None]
  - STRESS SYMPTOMS [None]
  - TACHYCARDIA [None]
  - TRANSIENT ISCHAEMIC ATTACK [None]
